FAERS Safety Report 6826242-3 (Version None)
Quarter: 2010Q3

REPORT INFORMATION
  Report Type: 
  Country: None (occurrence: None)
  Receive Date: 20100709
  Receipt Date: 20100625
  Transmission Date: 20110219
  Serious: Yes (Other)
  Sender: FDA-Public Use
  Company Number: PHHY2010CA41850

PATIENT
  Sex: Female

DRUGS (1)
  1. EXJADE [Suspect]
     Indication: MYELODYSPLASTIC SYNDROME
     Dosage: 1550 MG OD
     Route: 048

REACTIONS (3)
  - CATARACT OPERATION [None]
  - ECZEMA [None]
  - SERUM FERRITIN INCREASED [None]
